FAERS Safety Report 6534618-7 (Version None)
Quarter: 2010Q1

REPORT INFORMATION
  Report Type: 
  Country: None (occurrence: None)
  Receive Date: 20100112
  Receipt Date: 20100104
  Transmission Date: 20100710
  Serious: Yes (Death, Hospitalization)
  Sender: FDA-Public Use
  Company Number: B0622443A

PATIENT
  Age: 43 Year
  Sex: Male
  Weight: 63 kg

DRUGS (16)
  1. NIFEDIPINE [Suspect]
     Indication: HYPERTENSION
     Dosage: 30MG TWICE PER DAY
     Route: 065
     Dates: start: 20071031, end: 20071102
  2. DISULFIRAM [Suspect]
     Indication: ALCOHOL ABUSE
     Dosage: 200MG PER DAY
     Dates: start: 20070501
  3. AMITRIPTYLINE HCL [Suspect]
     Dosage: 25MG PER DAY
     Dates: start: 20070501
  4. RITONAVIR [Suspect]
     Indication: HIV INFECTION
     Dosage: 100MG TWICE PER DAY
     Dates: start: 20070401
  5. FOSAMPRENAVIR [Suspect]
     Indication: HIV INFECTION
     Dosage: 700MG TWICE PER DAY
     Route: 065
     Dates: start: 20070401
  6. DIDANOSINE [Suspect]
     Indication: HIV INFECTION
     Dates: start: 19990101, end: 20010101
  7. STAVUDINE [Suspect]
     Indication: HIV INFECTION
     Dosage: 40MG TWICE PER DAY
     Dates: start: 19990101, end: 20010101
  8. ZIDOVUDINE [Suspect]
     Indication: HIV INFECTION
     Dosage: 250MG TWICE PER DAY
     Dates: start: 19980101, end: 19990101
  9. TENOFOVIR [Suspect]
     Dosage: 300MG PER DAY
     Dates: start: 20060901
  10. EMTRICITABINE [Suspect]
     Indication: HIV INFECTION
     Dosage: 200MG PER DAY
     Dates: start: 20070401
  11. EFAVIRENZ [Concomitant]
     Indication: HIV INFECTION
     Dosage: 600MG PER DAY
     Dates: start: 19990101, end: 20010101
  12. LAMIVUDINE [Concomitant]
     Indication: HIV INFECTION
  13. GABAPENTIN [Concomitant]
     Dosage: 400MG PER DAY
     Dates: start: 20070401
  14. B COMPLEX WITH RIBOFLAVIN [Concomitant]
     Dates: start: 20070401
  15. MAGNESIUM [Concomitant]
     Dosage: 1500MG PER DAY
     Dates: start: 20070401
  16. LORAZEPAM [Concomitant]
     Dosage: 2.5MG PER DAY
     Dates: start: 20070401

REACTIONS (12)
  - ABDOMINAL DISTENSION [None]
  - CONFUSIONAL STATE [None]
  - DRUG INTERACTION [None]
  - DRUG TOXICITY [None]
  - HEPATIC FUNCTION ABNORMAL [None]
  - HYPERTENSION [None]
  - LACTIC ACIDOSIS [None]
  - LOSS OF CONSCIOUSNESS [None]
  - MALAISE [None]
  - MITOCHONDRIAL TOXICITY [None]
  - MULTI-ORGAN FAILURE [None]
  - SOMNOLENCE [None]
